FAERS Safety Report 4546688-6 (Version None)
Quarter: 2005Q1

REPORT INFORMATION
  Report Type: 
  Country: None (occurrence: None)
  Receive Date: 20050105
  Receipt Date: 20050103
  Transmission Date: 20050727
  Serious: Yes (Hospitalization)
  Sender: FDA-Public Use
  Company Number: 05-01-0003

PATIENT
  Age: 60 Year
  Sex: Female

DRUGS (1)
  1. CLOZAPINE [Suspect]
     Indication: SCHIZOPHRENIA
     Dosage: 300MG QD ORAL
     Route: 048
     Dates: start: 20040901, end: 20041201

REACTIONS (3)
  - APPENDICECTOMY [None]
  - INCISION SITE ABSCESS [None]
  - POST PROCEDURAL COMPLICATION [None]
